FAERS Safety Report 7928420-9 (Version None)
Quarter: 2011Q4

REPORT INFORMATION
  Report Type: 
  Country: None (occurrence: None)
  Receive Date: 20111118
  Receipt Date: 20110218
  Transmission Date: 20120403
  Serious: No
  Sender: FDA-Public Use
  Company Number: US-AMGEN-USASP2011000925

PATIENT
  Age: 69 Year
  Sex: Male

DRUGS (3)
  1. METHOTREXATE [Concomitant]
     Indication: RHEUMATOID ARTHRITIS
     Dosage: 1 MG, QWK
     Route: 048
     Dates: start: 20090501
  2. PREDNISONE TAB [Concomitant]
     Indication: RHEUMATOID ARTHRITIS
     Dosage: UNK
     Route: 048
  3. ENBREL [Suspect]
     Indication: RHEUMATOID ARTHRITIS
     Dosage: 50 MG, QWK
     Route: 058
     Dates: start: 20101104

REACTIONS (6)
  - COLD SWEAT [None]
  - RESPIRATORY TRACT CONGESTION [None]
  - HYPERHIDROSIS [None]
  - VIRAL INFECTION [None]
  - FEELING HOT [None]
  - RHINORRHOEA [None]
